FAERS Safety Report 6907851-X (Version None)
Quarter: 2010Q3

REPORT INFORMATION
  Report Type: 
  Country: None (occurrence: None)
  Receive Date: 20100712
  Receipt Date: 20100511
  Transmission Date: 20110219
  Serious: No
  Sender: FDA-Public Use
  Company Number: US-000256

PATIENT
  Sex: Male
  Weight: 87 kg

DRUGS (1)
  1. KUVAN [Suspect]
     Indication: PHENYLKETONURIA
     Dosage: (1700 MG QD ORAL)
     Route: 048
     Dates: start: 20100408, end: 20100101

REACTIONS (3)
  - CHEST DISCOMFORT [None]
  - DISCOMFORT [None]
  - FEELING ABNORMAL [None]
